FAERS Safety Report 11380626 (Version 3)
Quarter: 2016Q3

REPORT INFORMATION
  Report Type: Spontaneous
  Country: US (occurrence: US)
  Receive Date: 20150814
  Receipt Date: 20160804
  Transmission Date: 20161109
  Serious: Yes (Hospitalization, Other)
  Sender: FDA-Public Use
  Company Number: US-JNJFOC-20150722752

PATIENT
  Age: 35 Year
  Sex: Male
  Weight: 61.69 kg

DRUGS (23)
  1. MODAFINIL. [Concomitant]
     Active Substance: MODAFINIL
     Indication: SOMNOLENCE
     Route: 065
     Dates: start: 2011
  2. CIPRO [Suspect]
     Active Substance: CIPROFLOXACIN HYDROCHLORIDE
     Indication: OROPHARYNGEAL PAIN
     Route: 048
     Dates: start: 20080924
  3. MODAFINIL. [Concomitant]
     Active Substance: MODAFINIL
     Indication: ASTHENIA
     Route: 065
     Dates: start: 2008
  4. MODAFINIL. [Concomitant]
     Active Substance: MODAFINIL
     Indication: SOMNOLENCE
     Route: 065
     Dates: start: 2009
  5. BACTRIM [Concomitant]
     Active Substance: SULFAMETHOXAZOLE\TRIMETHOPRIM
     Indication: OROPHARYNGEAL PAIN
     Route: 065
     Dates: start: 200809
  6. AVELOX [Suspect]
     Active Substance: MOXIFLOXACIN HYDROCHLORIDE
     Indication: DYSPHAGIA
     Route: 048
     Dates: start: 20081006, end: 20081117
  7. MODAFINIL. [Concomitant]
     Active Substance: MODAFINIL
     Indication: SOMNOLENCE
     Route: 065
     Dates: start: 2010
  8. MODAFINIL. [Concomitant]
     Active Substance: MODAFINIL
     Indication: SOMNOLENCE
     Route: 065
     Dates: start: 2008
  9. AVELOX [Suspect]
     Active Substance: MOXIFLOXACIN HYDROCHLORIDE
     Indication: OROPHARYNGEAL PAIN
     Route: 048
     Dates: start: 20081006, end: 20081117
  10. MEDROL [Suspect]
     Active Substance: METHYLPREDNISOLONE
     Indication: PHARYNGEAL OEDEMA
     Route: 048
     Dates: start: 20080915, end: 20081006
  11. ADDERALL [Concomitant]
     Active Substance: AMPHETAMINE ASPARTATE\AMPHETAMINE SULFATE\DEXTROAMPHETAMINE SACCHARATE\DEXTROAMPHETAMINE SULFATE
     Indication: ATTENTION DEFICIT/HYPERACTIVITY DISORDER
     Route: 065
     Dates: start: 2009
  12. LEVAQUIN [Suspect]
     Active Substance: LEVOFLOXACIN
     Indication: NASOPHARYNGITIS
     Route: 048
     Dates: start: 20080915, end: 20080925
  13. ADDERALL [Concomitant]
     Active Substance: AMPHETAMINE ASPARTATE\AMPHETAMINE SULFATE\DEXTROAMPHETAMINE SACCHARATE\DEXTROAMPHETAMINE SULFATE
     Indication: ATTENTION DEFICIT/HYPERACTIVITY DISORDER
     Route: 065
     Dates: start: 2008
  14. ADDERALL [Concomitant]
     Active Substance: AMPHETAMINE ASPARTATE\AMPHETAMINE SULFATE\DEXTROAMPHETAMINE SACCHARATE\DEXTROAMPHETAMINE SULFATE
     Indication: ATTENTION DEFICIT/HYPERACTIVITY DISORDER
     Route: 065
     Dates: start: 2011
  15. LEVAQUIN [Suspect]
     Active Substance: LEVOFLOXACIN
     Indication: LOWER RESPIRATORY TRACT INFECTION
     Route: 048
     Dates: start: 20080925, end: 20081006
  16. MEDROL [Suspect]
     Active Substance: METHYLPREDNISOLONE
     Indication: OROPHARYNGEAL PAIN
     Route: 048
     Dates: start: 20080915, end: 20081006
  17. MODAFINIL. [Concomitant]
     Active Substance: MODAFINIL
     Indication: ASTHENIA
     Route: 065
     Dates: start: 2009
  18. LEVAQUIN [Suspect]
     Active Substance: LEVOFLOXACIN
     Indication: LOWER RESPIRATORY TRACT INFECTION
     Route: 048
     Dates: start: 20080915, end: 20080925
  19. LEVAQUIN [Suspect]
     Active Substance: LEVOFLOXACIN
     Indication: NASOPHARYNGITIS
     Route: 048
     Dates: start: 20080925, end: 20081006
  20. PREDNISONE. [Suspect]
     Active Substance: PREDNISONE
     Indication: OROPHARYNGEAL PAIN
     Route: 048
     Dates: start: 20080915, end: 20081006
  21. MODAFINIL. [Concomitant]
     Active Substance: MODAFINIL
     Indication: ASTHENIA
     Route: 065
     Dates: start: 2010
  22. MODAFINIL. [Concomitant]
     Active Substance: MODAFINIL
     Indication: ASTHENIA
     Route: 065
     Dates: start: 2011
  23. PREDNISONE. [Suspect]
     Active Substance: PREDNISONE
     Indication: PHARYNGEAL OEDEMA
     Route: 048
     Dates: start: 20080915, end: 20081006

REACTIONS (3)
  - Mitochondrial cytopathy [Unknown]
  - Musculoskeletal injury [Not Recovered/Not Resolved]
  - Neuropathy peripheral [Not Recovered/Not Resolved]

NARRATIVE: CASE EVENT DATE: 200810
